FAERS Safety Report 6288795-6 (Version None)
Quarter: 2009Q3

REPORT INFORMATION
  Report Type: 
  Country: None (occurrence: None)
  Receive Date: 20090729
  Receipt Date: 20090717
  Transmission Date: 20100115
  Serious: Yes (Hospitalization)
  Sender: FDA-Public Use
  Company Number: PL-PFIZER INC-2009241939

PATIENT
  Age: 26 Year

DRUGS (2)
  1. ZELDOX [Suspect]
     Dosage: 20 MG, 2X/DAY
     Route: 030
  2. RELANIUM [Concomitant]

REACTIONS (2)
  - CYSTITIS [None]
  - URINARY RETENTION [None]
